FAERS Safety Report 13669577 (Version 2)
Quarter: 2017Q3

REPORT INFORMATION
  Report Type: Report from Study
  Country: US (occurrence: US)
  Receive Date: 20170620
  Receipt Date: 20170818
  Transmission Date: 20171127
  Serious: Yes (Other)
  Sender: FDA-Public Use
  Company Number: US-AMGEN-USASL2017090128

PATIENT
  Age: 85 Year
  Sex: Female
  Weight: 85.35 kg

DRUGS (1)
  1. REPATHA [Suspect]
     Active Substance: EVOLOCUMAB
     Indication: HYPERCHOLESTEROLAEMIA
     Dosage: 140 MG, Q2WK
     Route: 058
     Dates: start: 20161208

REACTIONS (6)
  - Unevaluable event [Unknown]
  - Ligament sprain [Unknown]
  - Blood glucose abnormal [Unknown]
  - Rhinorrhoea [Unknown]
  - Swelling [Recovered/Resolved]
  - Rash generalised [Recovered/Resolved]

NARRATIVE: CASE EVENT DATE: 20170706
